FAERS Safety Report 15549486 (Version 1)
Quarter: 2018Q4

REPORT INFORMATION
  Report Type: Spontaneous
  Country: US (occurrence: US)
  Receive Date: 20181025
  Receipt Date: 20181025
  Transmission Date: 20190205
  Serious: No
  Sender: FDA-Public Use
  Company Number: US-PFIZER INC-2017493242

PATIENT
  Age: 66 Year
  Sex: Female

DRUGS (4)
  1. XELJANZ XR [Suspect]
     Active Substance: TOFACITINIB CITRATE
     Dosage: 11 MG, 1X/DAY
  2. CIDOFOVIR. [Suspect]
     Active Substance: CIDOFOVIR
     Dosage: 0.5 SOLUTION ONE DROP BOTH EYES ONCE DAILY)
  3. FAMCICLOVIR. [Suspect]
     Active Substance: FAMCICLOVIR
     Dosage: 500 MG, 2X/DAY
  4. RESTASIS [Interacting]
     Active Substance: CYCLOSPORINE
     Dosage: 0.05 EMULSION 1 DROP BOTH EYES TWICE A DAY)

REACTIONS (1)
  - Drug interaction [Unknown]
